FAERS Safety Report 14761533 (Version 1)
Quarter: 2018Q2

REPORT INFORMATION
  Report Type: Spontaneous
  Country: US (occurrence: US)
  Receive Date: 20180416
  Receipt Date: 20180416
  Transmission Date: 20180711
  Serious: No
  Sender: FDA-Public Use
  Company Number: US-BION-006130

PATIENT
  Age: 73 Year
  Sex: Female
  Weight: 41 kg

DRUGS (2)
  1. ALEVE [Suspect]
     Active Substance: NAPROXEN SODIUM
     Indication: CHEST DISCOMFORT
     Dosage: RECEIVED 2 DF, BID ON 11-MAR-2017, THEN 3 DF, QD FROM 12-MAR-2017 TO 20-MAR-2017
     Route: 048
     Dates: start: 20170311, end: 20170320
  2. GABAPENTIN. [Concomitant]
     Active Substance: GABAPENTIN

REACTIONS (4)
  - Therapeutic response unexpected [Unknown]
  - Incorrect dose administered [Not Recovered/Not Resolved]
  - Drug prescribing error [Not Recovered/Not Resolved]
  - Off label use [Unknown]

NARRATIVE: CASE EVENT DATE: 20170311
